FAERS Safety Report 4854254-8 (Version None)
Quarter: 2005Q4

REPORT INFORMATION
  Report Type: 
  Country: None (occurrence: None)
  Receive Date: 20051213
  Receipt Date: 20051205
  Transmission Date: 20060501
  Serious: Yes (Hospitalization, Other)
  Sender: FDA-Public Use
  Company Number: 163-20785-05090413

PATIENT
  Age: 76 Year
  Sex: Female
  Weight: 64.8644 kg

DRUGS (9)
  1. THALOMID [Suspect]
     Indication: MYELODYSPLASTIC SYNDROME
     Dosage: 100 MG, QHS, ORAL
     Route: 048
     Dates: start: 20050822
  2. VIDAZA [Suspect]
     Indication: MYELODYSPLASTIC SYNDROME
     Dosage: SEE IMAGE
     Route: 058
     Dates: start: 20050822, end: 20050826
  3. VIDAZA [Suspect]
     Indication: MYELODYSPLASTIC SYNDROME
     Dosage: SEE IMAGE
     Route: 058
     Dates: start: 20050919, end: 20050923
  4. VIDAZA [Suspect]
     Indication: MYELODYSPLASTIC SYNDROME
     Dosage: SEE IMAGE
     Route: 058
     Dates: start: 20051019, end: 20051023
  5. LOPRESSOR [Suspect]
     Indication: HYPERTENSION
     Dosage: BID, ORAL
     Route: 048
     Dates: end: 20050915
  6. TRIAMTERENE AND HYDROCHLOROTHIAZIDE [Concomitant]
  7. AVANDIA [Concomitant]
  8. KLOR-CON [Concomitant]
  9. CALCIUM (CALCIUM) [Concomitant]

REACTIONS (5)
  - BRADYCARDIA [None]
  - INFLAMMATION [None]
  - LUNG NEOPLASM [None]
  - METASTASES TO LUNG [None]
  - PLEURAL EFFUSION [None]
